APPROVED DRUG PRODUCT: AMANTADINE HYDROCHLORIDE
Active Ingredient: AMANTADINE HYDROCHLORIDE
Strength: 100MG
Dosage Form/Route: TABLET;ORAL
Application: A210403 | Product #001
Applicant: JUBILANT GENERICS LTD
Approved: Feb 7, 2018 | RLD: No | RS: No | Type: DISCN